FAERS Safety Report 18279746 (Version 1)
Quarter: 2020Q3

REPORT INFORMATION
  Report Type: Spontaneous
  Country: ES (occurrence: ES)
  Receive Date: 20200917
  Receipt Date: 20200917
  Transmission Date: 20201103
  Serious: Yes (Life-Threatening, Hospitalization)
  Sender: FDA-Public Use
  Company Number: ES-ABBVIE-20K-144-3569431-00

PATIENT
  Age: 81 Year
  Sex: Female

DRUGS (4)
  1. HIDROXICLOROQUINA SULFATO [Concomitant]
     Active Substance: HYDROXYCHLOROQUINE SULFATE
     Indication: COVID-19 PNEUMONIA
     Dosage: (2143SU)
     Route: 048
     Dates: start: 20200409, end: 20200412
  2. KALETRA [Suspect]
     Active Substance: LOPINAVIR\RITONAVIR
     Indication: COVID-19 PNEUMONIA
     Dosage: 200 MG/50 MG
     Route: 048
     Dates: start: 20200409, end: 20200412
  3. AZITROMICINA [Concomitant]
     Active Substance: AZITHROMYCIN DIHYDRATE
     Indication: COVID-19 PNEUMONIA
     Dosage: (7019A)
     Route: 048
     Dates: start: 20200408, end: 20200411
  4. LACOSAMIDA [Interacting]
     Active Substance: LACOSAMIDE
     Indication: TRIGEMINAL NEURALGIA
     Dosage: (8279A)
     Route: 048
     Dates: start: 20180401, end: 20200412

REACTIONS (4)
  - Off label use [Unknown]
  - Atrioventricular block [Recovered/Resolved]
  - Drug interaction [Unknown]
  - Bradycardia [Recovered/Resolved]

NARRATIVE: CASE EVENT DATE: 2020
